FAERS Safety Report 14685099 (Version 1)
Quarter: 2018Q1

REPORT INFORMATION
  Report Type: Spontaneous
  Country: TR (occurrence: TR)
  Receive Date: 20180327
  Receipt Date: 20180327
  Transmission Date: 20180509
  Serious: Yes (Hospitalization)
  Sender: FDA-Public Use
  Company Number: TR-PFIZER INC-2018125070

PATIENT
  Age: 36 Year
  Sex: Male
  Weight: 100 kg

DRUGS (5)
  1. TAZOCIN [Suspect]
     Active Substance: PIPERACILLIN SODIUM\TAZOBACTAM SODIUM
     Indication: CELLULITIS
     Dosage: 4.5 G, DAILY
     Route: 042
     Dates: start: 20180201, end: 20180201
  2. PARTEMOL [Concomitant]
     Indication: CELLULITIS
     Dosage: 1 G, UNK
     Dates: start: 20180131, end: 20180204
  3. BENISON [Concomitant]
     Indication: CELLULITIS
     Dosage: 20 MG, UNK
     Dates: start: 20180131, end: 20180204
  4. ENOX [Concomitant]
     Indication: CELLULITIS
     Dosage: 6000 UNK, UNK
     Dates: start: 20180131, end: 20180204
  5. PREDNOL [Concomitant]
     Active Substance: METHYLPREDNISOLONE
     Indication: CELLULITIS
     Dosage: 40 MG, UNK
     Dates: start: 20180131, end: 20180204

REACTIONS (2)
  - Epistaxis [Recovered/Resolved]
  - Eye swelling [Recovered/Resolved]

NARRATIVE: CASE EVENT DATE: 20180201
